FAERS Safety Report 22245983 (Version 6)
Quarter: 2024Q1

REPORT INFORMATION
  Report Type: Spontaneous
  Country: US (occurrence: US)
  Receive Date: 20230424
  Receipt Date: 20240315
  Transmission Date: 20240410
  Serious: No
  Sender: FDA-Public Use
  Company Number: US-BRISTOL-MYERS SQUIBB COMPANY-2023-056769

PATIENT
  Age: 82 Year
  Sex: Male
  Weight: 107.95 kg

DRUGS (1)
  1. POMALYST [Suspect]
     Active Substance: POMALIDOMIDE
     Indication: Plasma cell myeloma
     Route: 048
     Dates: start: 2023

REACTIONS (5)
  - Brain fog [Unknown]
  - Fatigue [Unknown]
  - Off label use [Unknown]
  - Cardiac disorder [Unknown]
  - Hypoacusis [Unknown]
